FAERS Safety Report 8762293 (Version 2)
Quarter: 2012Q4

REPORT INFORMATION
  Report Type: 
  Country: JP (occurrence: JP)
  Receive Date: 20120830
  Receipt Date: 20121003
  Transmission Date: 20130627
  Serious: Yes (Other)
  Sender: FDA-Public Use
  Company Number: JP-PFIZER INC-2012211532

PATIENT
  Age: 62 Year
  Sex: Female

DRUGS (8)
  1. NORVASC [Suspect]
     Route: 048
  2. WARFARIN [Suspect]
     Route: 048
  3. MEVALOTIN [Suspect]
     Route: 048
  4. VASOLAN [Suspect]
     Route: 048
  5. RYTHMODAN [Suspect]
     Route: 048
  6. ARTIST [Suspect]
     Route: 048
  7. RIVOTRIL [Suspect]
     Route: 048
  8. TEGRETOL [Suspect]
     Route: 048

REACTIONS (1)
  - Tuberculosis gastrointestinal [Unknown]
